FAERS Safety Report 17657291 (Version 4)
Quarter: 2021Q1

REPORT INFORMATION
  Report Type: Report from Study
  Country: US (occurrence: US)
  Receive Date: 20200410
  Receipt Date: 20210108
  Transmission Date: 20210419
  Serious: Yes (Hospitalization)
  Sender: FDA-Public Use
  Company Number: US-PRINSTON PHARMACEUTICAL INC.-2020PRN00112

PATIENT
  Age: 17 Year
  Sex: Female

DRUGS (11)
  1. ATORVASTATIN [Concomitant]
     Active Substance: ATORVASTATIN
     Dosage: 20 MG, 1X/DAY
     Dates: end: 20200318
  2. SPARSENTAN. [Suspect]
     Active Substance: SPARSENTAN
     Indication: FOCAL SEGMENTAL GLOMERULOSCLEROSIS
     Dosage: 400 MG, 1X/DAY
     Route: 048
     Dates: start: 20200212, end: 20200225
  3. FUROSEMIDE. [Concomitant]
     Active Substance: FUROSEMIDE
     Dosage: 40 MG, 1X/DAY
     Route: 048
     Dates: start: 20181102, end: 20200225
  4. TACROLIMUS. [Concomitant]
     Active Substance: TACROLIMUS
  5. NORETHINDRONE. [Concomitant]
     Active Substance: NORETHINDRONE
  6. IRBESARTAN. [Suspect]
     Active Substance: IRBESARTAN
     Indication: FOCAL SEGMENTAL GLOMERULOSCLEROSIS
     Dosage: 150 MG, 1X/DAY
     Route: 048
     Dates: start: 20200212, end: 20200225
  7. IRBESARTAN. [Suspect]
     Active Substance: IRBESARTAN
     Dosage: 300 MG, 1X/DAY
     Route: 048
     Dates: start: 20200226
  8. SPARSENTAN. [Suspect]
     Active Substance: SPARSENTAN
     Dosage: 800 MG, 1X/DAY
     Route: 048
     Dates: start: 20200226
  9. VITAMIN D [Concomitant]
     Active Substance: VITAMIN D NOS
  10. ATORVASTATIN [Concomitant]
     Active Substance: ATORVASTATIN
     Dosage: 40 MG, 1X/DAY
     Dates: start: 20200318
  11. AMLODIPINE [Concomitant]
     Active Substance: AMLODIPINE BESYLATE

REACTIONS (3)
  - Oedema [Recovered/Resolved]
  - Off label use [Not Recovered/Not Resolved]
  - Hypoalbuminaemia [Recovered/Resolved]

NARRATIVE: CASE EVENT DATE: 20200212
